FAERS Safety Report 9595978 (Version 2)
Quarter: 2013Q4

REPORT INFORMATION
  Report Type: Spontaneous
  Country: RU (occurrence: RU)
  Receive Date: 20131004
  Receipt Date: 20131010
  Transmission Date: 20140711
  Serious: Yes (Other)
  Sender: FDA-Public Use
  Company Number: RU-BAYER-2013-116675

PATIENT
  Age: 23 Year
  Sex: Female

DRUGS (1)
  1. QLAIRA [Suspect]

REACTIONS (3)
  - Salpingo-oophoritis [None]
  - Drug-induced liver injury [Recovered/Resolved]
  - Hepatic enzyme increased [Recovered/Resolved]
